FAERS Safety Report 16959653 (Version 2)
Quarter: 2019Q4

REPORT INFORMATION
  Report Type: Spontaneous
  Country: AU (occurrence: AU)
  Receive Date: 20191025
  Receipt Date: 20191101
  Transmission Date: 20200122
  Serious: Yes (Other)
  Sender: FDA-Public Use
  Company Number: AU-BEH-2019108444

PATIENT
  Age: 1 Month
  Sex: Male
  Weight: 2.8 kg

DRUGS (5)
  1. FRUSEMIDE [FUROSEMIDE] [Concomitant]
     Active Substance: FUROSEMIDE
     Dosage: 0.5 MILLIGRAM/KILOGRAM/ DOSE (MIDWAY ALBUMIN INFUSION)
  2. ALBUMEX 20 [Suspect]
     Active Substance: ALBUMIN HUMAN
     Dosage: 10 MILLILITER
     Route: 042
  3. CEFEPIME [Concomitant]
     Active Substance: CEFEPIME HYDROCHLORIDE
     Indication: SERRATIA SEPSIS
     Dosage: 50 MILLIGRAM/KILOGRAM, PER DAY (8 HOURLY)
     Route: 042
     Dates: start: 20191018
  4. ALBUMEX 20 [Suspect]
     Active Substance: ALBUMIN HUMAN
     Indication: CONGENITAL NEPHROTIC SYNDROME
     Dosage: 2.8 GRAM (1G/ KG), TOTAL OVER 4 HOURS
     Route: 042
     Dates: start: 20191021, end: 20191021
  5. LISINOPRIL. [Concomitant]
     Active Substance: LISINOPRIL
     Indication: CONGENITAL NEPHROTIC SYNDROME
     Dosage: 0.5 MILLIGRAM, DAILY
     Route: 048
     Dates: start: 20191021

REACTIONS (10)
  - Oxygen saturation abnormal [Recovering/Resolving]
  - Suspected product contamination [Unknown]
  - Posturing [Recovering/Resolving]
  - Pyrexia [Recovering/Resolving]
  - Apnoea [Recovering/Resolving]
  - Agitation [Recovering/Resolving]
  - Suspected product contamination [Recovering/Resolving]
  - Tonic posturing [Unknown]
  - Livedo reticularis [Recovering/Resolving]
  - General physical health deterioration [Recovering/Resolving]

NARRATIVE: CASE EVENT DATE: 20191021
